FAERS Safety Report 5801349-8 (Version None)
Quarter: 2008Q3

REPORT INFORMATION
  Report Type: 
  Country: None (occurrence: None)
  Receive Date: 20080703
  Receipt Date: 20080703
  Transmission Date: 20090109
  Serious: Yes (Death)
  Sender: FDA-Public Use
  Company Number: None

PATIENT
  Sex: Male
  Weight: 74.8435 kg

DRUGS (11)
  1. RITUXAN [Suspect]
     Indication: CHRONIC LYMPHOCYTIC LEUKAEMIA
     Dosage: 715 MG Q3-4 WKS IV
     Route: 042
     Dates: start: 20080104
  2. RITUXAN [Suspect]
     Indication: CHRONIC LYMPHOCYTIC LEUKAEMIA
     Dosage: 715 MG Q3-4 WKS IV
     Route: 042
     Dates: start: 20080218
  3. RITUXAN [Suspect]
     Indication: CHRONIC LYMPHOCYTIC LEUKAEMIA
     Dosage: 715 MG Q3-4 WKS IV
     Route: 042
     Dates: start: 20080317
  4. RITUXAN [Suspect]
     Indication: CHRONIC LYMPHOCYTIC LEUKAEMIA
     Dosage: 715 MG Q3-4 WKS IV
     Route: 042
     Dates: start: 20080331
  5. RITUXAN [Suspect]
  6. RITUXAN [Suspect]
  7. RITUXAN [Suspect]
  8. RITUXAN [Suspect]
  9. RITUXAN [Suspect]
  10. RITUXAN [Suspect]
  11. RITUXAN [Suspect]

REACTIONS (2)
  - HAEMORRHAGE [None]
  - PNEUMONITIS [None]
